FAERS Safety Report 10185847 (Version 3)
Quarter: 2014Q2

REPORT INFORMATION
  Report Type: Spontaneous
  Country: US (occurrence: US)
  Receive Date: 20140521
  Receipt Date: 20140603
  Transmission Date: 20141212
  Serious: Yes (Other)
  Sender: FDA-Public Use
  Company Number: US-JNJFOC-20140507619

PATIENT
  Age: 35 Year
  Sex: Female
  Weight: 112.49 kg

DRUGS (6)
  1. XARELTO [Suspect]
     Indication: PULMONARY EMBOLISM
     Route: 048
     Dates: start: 20131114, end: 201403
  2. XARELTO [Suspect]
     Indication: DEEP VEIN THROMBOSIS
     Route: 048
     Dates: start: 20131114, end: 201403
  3. LOVENOX [Suspect]
     Indication: PRODUCT USED FOR UNKNOWN INDICATION
     Route: 058
  4. ASPIRIN [Suspect]
     Indication: DEEP VEIN THROMBOSIS
     Route: 065
  5. CLONAZEPAM [Suspect]
     Indication: ANXIETY
     Route: 065
  6. HYDROCODONE [Suspect]
     Indication: PAIN
     Dosage: 5/500 MG
     Route: 065

REACTIONS (2)
  - Abortion spontaneous [Recovered/Resolved]
  - Exposure during pregnancy [Recovered/Resolved]
